FAERS Safety Report 9169449 (Version 1)
Quarter: 2013Q1

REPORT INFORMATION
  Report Type: Spontaneous
  Country: US (occurrence: US)
  Receive Date: 20130318
  Receipt Date: 20130318
  Transmission Date: 20140127
  Serious: Yes (Death, Hospitalization)
  Sender: FDA-Public Use
  Company Number: US-MYLANLABS-2013S1005130

PATIENT
  Age: 38 Year
  Sex: Female

DRUGS (6)
  1. VALPROIC ACID [Suspect]
     Route: 065
  2. VALPROIC ACID [Suspect]
     Route: 065
  3. PERPHENAZINE [Concomitant]
     Dosage: 4MG QAM
     Route: 065
  4. PERPHENAZINE [Concomitant]
     Dosage: 6MGQ PM
     Route: 065
  5. CYCLOBENZAPRINE [Concomitant]
     Indication: NECK PAIN
     Dosage: 10MG TID
     Route: 065
  6. SERTRALINE [Concomitant]
     Dosage: 100MG QD
     Route: 065

REACTIONS (4)
  - Hyperammonaemic encephalopathy [Fatal]
  - Brain oedema [Fatal]
  - Brain herniation [Fatal]
  - Hepatomegaly [Fatal]
